FAERS Safety Report 12520269 (Version 2)
Quarter: 2016Q3

REPORT INFORMATION
  Report Type: Spontaneous
  Country: US (occurrence: US)
  Receive Date: 20160701
  Receipt Date: 20160722
  Transmission Date: 20161109
  Serious: Yes (Death)
  Sender: FDA-Public Use
  Company Number: US-BAUSCH-BL-2016-015398

PATIENT
  Age: 71 Year
  Sex: Female

DRUGS (3)
  1. XIFAXAN [Suspect]
     Active Substance: RIFAXIMIN
     Indication: LIVER DISORDER
  2. XIFAXAN [Suspect]
     Active Substance: RIFAXIMIN
     Indication: CHRONIC OBSTRUCTIVE PULMONARY DISEASE
  3. XIFAXAN [Suspect]
     Active Substance: RIFAXIMIN
     Indication: HEPATIC FAILURE
     Route: 065
     Dates: start: 20160218

REACTIONS (1)
  - Death [Fatal]

NARRATIVE: CASE EVENT DATE: 20160627
